FAERS Safety Report 4538348-2 (Version None)
Quarter: 2004Q4

REPORT INFORMATION
  Report Type: 
  Country: None (occurrence: None)
  Receive Date: 20041221
  Receipt Date: 20041210
  Transmission Date: 20050328
  Serious: Yes (Other)
  Sender: FDA-Public Use
  Company Number: 199906330

PATIENT
  Age: 37 Year
  Sex: Female
  Weight: 50.8029 kg

DRUGS (1)
  1. BOTOX [Suspect]
     Indication: SKIN WRINKLING
     Dosage: 22 UNITS PRN IM
     Route: 030
     Dates: start: 19990716

REACTIONS (21)
  - CHILLS [None]
  - DENTAL CARIES [None]
  - DRUG INEFFECTIVE [None]
  - DRY EYE [None]
  - DYSKINESIA [None]
  - ERYTHEMA [None]
  - EYELID DISORDER [None]
  - FACIAL PAIN [None]
  - FACIAL PALSY [None]
  - FATIGUE [None]
  - HEADACHE [None]
  - INJECTION SITE ANAESTHESIA [None]
  - LACRIMAL DISORDER [None]
  - LIP DISORDER [None]
  - PAIN [None]
  - PAIN IN JAW [None]
  - PARALYSIS [None]
  - SKIN SWELLING [None]
  - SPEECH DISORDER [None]
  - TOOTH FRACTURE [None]
  - VISUAL FIELD DEFECT [None]
